FAERS Safety Report 6277524-8 (Version None)
Quarter: 2009Q3

REPORT INFORMATION
  Report Type: 
  Country: None (occurrence: None)
  Receive Date: 20090722
  Receipt Date: 20090710
  Transmission Date: 20100115
  Serious: Yes (Other)
  Sender: FDA-Public Use
  Company Number: US-PFIZER INC-2009226980

PATIENT
  Sex: Female
  Weight: 95.238 kg

DRUGS (3)
  1. DILANTIN-125 [Suspect]
     Indication: EPILEPSY
     Dates: end: 20090611
  2. ETANERCEPT [Concomitant]
  3. METHOTREXATE [Concomitant]

REACTIONS (4)
  - AMNESIA [None]
  - ANTICONVULSANT DRUG LEVEL INCREASED [None]
  - COMA [None]
  - CONVULSION [None]
